FAERS Safety Report 16809411 (Version 5)
Quarter: 2020Q3

REPORT INFORMATION
  Report Type: Report from Study
  Country: US (occurrence: US)
  Receive Date: 20190916
  Receipt Date: 20200730
  Transmission Date: 20201102
  Serious: Yes (Other)
  Sender: FDA-Public Use
  Company Number: PHEH2019US038114

PATIENT
  Age: 52 Year
  Sex: Female

DRUGS (1)
  1. COSENTYX [Suspect]
     Active Substance: SECUKINUMAB
     Indication: PSORIATIC ARTHROPATHY
     Dosage: 150 MG, QMO (Q4W)
     Route: 058
     Dates: start: 20190516

REACTIONS (6)
  - Psoriasis [Unknown]
  - Psoriatic arthropathy [Unknown]
  - Viral infection [Recovering/Resolving]
  - Influenza [Unknown]
  - Arthritis [Unknown]
  - Procedural complication [Unknown]

NARRATIVE: CASE EVENT DATE: 20200220
